FAERS Safety Report 4615966-4 (Version None)
Quarter: 2005Q1

REPORT INFORMATION
  Report Type: 
  Country: None (occurrence: None)
  Receive Date: 20050318
  Receipt Date: 20050309
  Transmission Date: 20050727
  Serious: Yes (Other)
  Sender: FDA-Public Use
  Company Number: 2005041807

PATIENT
  Sex: 0

DRUGS (1)
  1. CELEBREX [Suspect]
     Indication: PSORIATIC ARTHROPATHY
     Dosage: (200 MG, PRN), ORAL
     Route: 048
     Dates: start: 20040101, end: 20040101

REACTIONS (1)
  - CONVULSION [None]
